FAERS Safety Report 9251642 (Version 1)
Quarter: 2013Q2

REPORT INFORMATION
  Report Type: Report from Study
  Country: US (occurrence: US)
  Receive Date: 20130424
  Receipt Date: 20130424
  Transmission Date: 20140414
  Serious: No
  Sender: FDA-Public Use
  Company Number: US-009507513-1304USA008916

PATIENT
  Age: 20 Year
  Sex: Female
  Weight: 84.63 kg

DRUGS (1)
  1. IMPLANON [Suspect]
     Dosage: UNK
     Dates: start: 20100624, end: 20130417

REACTIONS (1)
  - Medical device removal [Unknown]
